FAERS Safety Report 4975758-3 (Version None)
Quarter: 2006Q2

REPORT INFORMATION
  Report Type: 
  Country: None (occurrence: None)
  Receive Date: 20060411
  Receipt Date: 20060323
  Transmission Date: 20061013
  Serious: Yes (Other)
  Sender: FDA-Public Use
  Company Number: FR200601000745

PATIENT
  Age: 81 Year
  Sex: Female

DRUGS (4)
  1. FORTEO [Suspect]
     Indication: OSTEOPOROSIS
     Dosage: 20 UG, DAILY (1/D), SUBCUTANEOUS
     Route: 058
     Dates: start: 20050701, end: 20060313
  2. FORTEO [Concomitant]
  3. ACETAMINOPHEN [Concomitant]
  4. ESTRADERM [Concomitant]

REACTIONS (8)
  - ARRHYTHMIA [None]
  - ATRIAL FIBRILLATION [None]
  - BACK PAIN [None]
  - COLITIS [None]
  - CONDITION AGGRAVATED [None]
  - FLATULENCE [None]
  - HEART RATE INCREASED [None]
  - TREATMENT NONCOMPLIANCE [None]
